FAERS Safety Report 8176169-2 (Version None)
Quarter: 2012Q1

REPORT INFORMATION
  Report Type: 
  Country: None (occurrence: None)
  Receive Date: 20120301
  Receipt Date: 20120222
  Transmission Date: 20120608
  Serious: Yes (Hospitalization, Other)
  Sender: FDA-Public Use
  Company Number: US-BAYER-2011-075018

PATIENT
  Age: 49 Year
  Sex: Female
  Weight: 72 kg

DRUGS (4)
  1. TRIAMCINOLONE [Concomitant]
     Indication: DERMATITIS CONTACT
     Dosage: UNK
     Dates: start: 20090529
  2. YASMIN [Suspect]
     Dosage: UNK
     Route: 048
     Dates: start: 20090813, end: 20090818
  3. IBUPROFEN [Concomitant]
  4. AQUAPHOR [PETROLATUM] [Concomitant]
     Indication: DERMATITIS CONTACT
     Dosage: UNK
     Dates: start: 20090529

REACTIONS (3)
  - THROMBOPHLEBITIS SUPERFICIAL [None]
  - INJURY [None]
  - THROMBOSIS [None]
